FAERS Safety Report 16276469 (Version 1)
Quarter: 2019Q2

REPORT INFORMATION
  Report Type: Spontaneous
  Country: CN (occurrence: CN)
  Receive Date: 20190505
  Receipt Date: 20190505
  Transmission Date: 20190711
  Serious: Yes (Other)
  Sender: FDA-Public Use
  Company Number: CN-009507513-1904CHN012782

PATIENT
  Age: 54 Year
  Sex: Male
  Weight: 65 kg

DRUGS (6)
  1. MEPEM [Suspect]
     Active Substance: MEROPENEM
     Dosage: 0.5 GRAM, TID
     Dates: start: 20180626, end: 20180629
  2. MEPEM [Suspect]
     Active Substance: MEROPENEM
     Indication: LUNG INFECTION
     Dosage: 0.5 GRAM, BID INTERMITTENTLY
     Dates: start: 20180603, end: 20180613
  3. MEPEM [Suspect]
     Active Substance: MEROPENEM
     Dosage: 0.5 GRAM, QD
     Dates: start: 20180624, end: 20180625
  4. CANCIDAS [Suspect]
     Active Substance: CASPOFUNGIN ACETATE
     Indication: FUNGAL INFECTION
     Dosage: 50 MILLIGRAM, QD
     Dates: start: 20180616, end: 20180703
  5. CANCIDAS [Suspect]
     Active Substance: CASPOFUNGIN ACETATE
     Indication: URINARY TRACT INFECTION FUNGAL
  6. TAZOCIN (PIPERACILLIN SODIUM (+) TAZOBACTAM SODIUM) [Suspect]
     Active Substance: PIPERACILLIN SODIUM\TAZOBACTAM SODIUM
     Indication: LUNG INFECTION
     Dosage: 4.5 GRAM, TID
     Dates: start: 20180614, end: 20180621

REACTIONS (2)
  - Gastrointestinal tube insertion [Unknown]
  - Diarrhoea [Recovering/Resolving]

NARRATIVE: CASE EVENT DATE: 2018
